FAERS Safety Report 9833487 (Version 1)
Quarter: 2014Q1

REPORT INFORMATION
  Report Type: Report from Study
  Country: US (occurrence: US)
  Receive Date: 20140122
  Receipt Date: 20140122
  Transmission Date: 20141002
  Serious: Yes (Other)
  Sender: FDA-Public Use
  Company Number: US-ROCHE-1334468

PATIENT
  Sex: Female

DRUGS (4)
  1. LUCENTIS [Suspect]
     Indication: AGE-RELATED MACULAR DEGENERATION
     Dosage: RIGHT EYE
     Route: 050
     Dates: start: 2010
  2. PLAVIX [Concomitant]
  3. ZETIA [Concomitant]
  4. BABY ASPIRIN [Concomitant]

REACTIONS (8)
  - Blindness [Unknown]
  - Depression [Unknown]
  - Cardiac valve disease [Unknown]
  - Visual acuity reduced [Unknown]
  - Gout [Unknown]
  - Ligament rupture [Unknown]
  - Age-related macular degeneration [Unknown]
  - Visual impairment [Unknown]
